FAERS Safety Report 4431148-3 (Version None)
Quarter: 2004Q3

REPORT INFORMATION
  Report Type: 
  Country: None (occurrence: None)
  Receive Date: 20040824
  Receipt Date: 20040812
  Transmission Date: 20050211
  Serious: Yes (Hospitalization, Other)
  Sender: FDA-Public Use
  Company Number: GB-BRISTOL-MYERS SQUIBB COMPANY-12669826

PATIENT
  Age: 47 Year
  Sex: Male

DRUGS (1)
  1. KENALOG [Suspect]
     Indication: ANKYLOSING SPONDYLITIS
     Route: 030

REACTIONS (2)
  - PARAPLEGIA [None]
  - SCIATICA [None]
